FAERS Safety Report 5541783-7 (Version None)
Quarter: 2007Q4

REPORT INFORMATION
  Report Type: 
  Country: None (occurrence: None)
  Receive Date: 20071210
  Receipt Date: 20071203
  Transmission Date: 20080405
  Serious: Yes (Other)
  Sender: FDA-Public Use
  Company Number: B0493383A

PATIENT
  Age: 65 Year
  Sex: Female
  Weight: 53.1 kg

DRUGS (8)
  1. PAXIL [Suspect]
     Indication: DEPRESSION
     Dosage: 10MG PER DAY
     Route: 048
     Dates: start: 20071025, end: 20071025
  2. CLARITHROMYCIN [Concomitant]
     Dosage: 400MG PER DAY
     Route: 048
     Dates: start: 20071025, end: 20071030
  3. MUCODYNE [Concomitant]
     Dosage: 750MG PER DAY
     Route: 048
     Dates: start: 20071025, end: 20071030
  4. MEDICON [Concomitant]
     Dosage: 45MG PER DAY
     Route: 048
     Dates: start: 20071025, end: 20071030
  5. CHINESE MEDICINE [Concomitant]
     Dosage: 7.5G PER DAY
     Route: 048
     Dates: start: 20071025, end: 20071030
  6. RADEN [Concomitant]
     Dosage: 150MG PER DAY
     Route: 048
     Dates: start: 20070120
  7. GASMOTIN [Concomitant]
     Dosage: 15MG PER DAY
     Route: 048
     Dates: start: 20070120
  8. MUCOSTA [Concomitant]
     Dosage: 300MG PER DAY
     Route: 048
     Dates: start: 20070120

REACTIONS (6)
  - ANXIETY [None]
  - DYSPHORIA [None]
  - DYSPNOEA [None]
  - NAUSEA [None]
  - PALPITATIONS [None]
  - SHOCK [None]
